FAERS Safety Report 4679918-0 (Version None)
Quarter: 2005Q2

REPORT INFORMATION
  Report Type: 
  Country: None (occurrence: None)
  Receive Date: 20050602
  Receipt Date: 20050404
  Transmission Date: 20051028
  Serious: Yes (Hospitalization)
  Sender: FDA-Public Use
  Company Number: US-BRISTOL-MYERS SQUIBB COMPANY-12920989

PATIENT
  Age: 42 Year
  Sex: Female
  Weight: 108 kg

DRUGS (3)
  1. CISPLATIN [Suspect]
     Indication: SMALL CELL LUNG CANCER LIMITED STAGE
     Dosage: GIVEN ON DAY 1 EVERY THREE WEEKS.  CYCLE ONE WAS GIVEN ON 31-JAN-2005.
     Route: 042
     Dates: start: 20050221
  2. CAMPTOSAR [Suspect]
     Indication: SMALL CELL LUNG CANCER LIMITED STAGE
     Dosage: GIVEN ON DAYS 1 + 8 EVERY THREE WEEKS.  CYCLE ONE 31-JAN-2005
     Route: 042
     Dates: start: 20050228
  3. RADIOTHERAPY [Suspect]
     Dosage: 6800 OGY
     Dates: start: 20050131

REACTIONS (15)
  - CHILLS [None]
  - DEHYDRATION [None]
  - DYSPHAGIA [None]
  - HAEMOGLOBIN DECREASED [None]
  - HYPOCALCAEMIA [None]
  - HYPOMAGNESAEMIA [None]
  - HYPONATRAEMIA [None]
  - MUSCLE SPASMS [None]
  - NAUSEA [None]
  - OESOPHAGITIS [None]
  - OESOPHAGITIS ULCERATIVE [None]
  - PULMONARY CONGESTION [None]
  - RADIATION SKIN INJURY [None]
  - VOMITING [None]
  - WEIGHT FLUCTUATION [None]
